FAERS Safety Report 25489149 (Version 1)
Quarter: 2025Q2

REPORT INFORMATION
  Report Type: Spontaneous
  Country: US (occurrence: US)
  Receive Date: 20250627
  Receipt Date: 20250627
  Transmission Date: 20250717
  Serious: No
  Sender: SANOFI AVENTIS
  Company Number: US-SA-2025SA179808

PATIENT
  Age: 71 Year
  Sex: Female

DRUGS (6)
  1. NEXVIAZYME [Suspect]
     Active Substance: AVALGLUCOSIDASE ALFA-NGPT
     Indication: Glycogen storage disease type II
     Dosage: 2400 MG, QOW
     Route: 042
     Dates: start: 202401
  2. DEXTROSE [Concomitant]
     Active Substance: DEXTROSE MONOHYDRATE
  3. FAMOTIDINE [Concomitant]
     Active Substance: FAMOTIDINE
  4. SODIUM CHLORIDE [Concomitant]
     Active Substance: SODIUM CHLORIDE
  5. DEXTROSE [Concomitant]
     Active Substance: DEXTROSE MONOHYDRATE
  6. ACETAMINOPHEN [Concomitant]
     Active Substance: ACETAMINOPHEN

REACTIONS (1)
  - Hypoaesthesia oral [Unknown]

NARRATIVE: CASE EVENT DATE: 20250606
